FAERS Safety Report 17558074 (Version 2)
Quarter: 2020Q2

REPORT INFORMATION
  Report Type: Spontaneous
  Country: DE (occurrence: DE)
  Receive Date: 20200318
  Receipt Date: 20200407
  Transmission Date: 20200713
  Serious: Yes (Hospitalization)
  Sender: FDA-Public Use
  Company Number: DE-JNJFOC-20200318780

PATIENT
  Age: 77 Year
  Sex: Male
  Weight: 94 kg

DRUGS (2)
  1. RIVAROXABAN [Suspect]
     Active Substance: RIVAROXABAN
     Indication: PULMONARY EMBOLISM
     Dosage: 20 MG, QD
     Route: 048
     Dates: start: 20160615, end: 20170526
  2. RIVAROXABAN [Suspect]
     Active Substance: RIVAROXABAN
     Dosage: 20 MG, QD
     Route: 048
     Dates: start: 20170712

REACTIONS (3)
  - Anaemia postoperative [Recovered/Resolved]
  - Osteoarthritis [Recovering/Resolving]
  - Septic arthritis staphylococcal [Recovered/Resolved]

NARRATIVE: CASE EVENT DATE: 20170510
